FAERS Safety Report 12056517 (Version 1)
Quarter: 2016Q1

REPORT INFORMATION
  Report Type: Report from Study
  Country: US (occurrence: US)
  Receive Date: 20160209
  Receipt Date: 20160209
  Transmission Date: 20160526
  Serious: No
  Sender: FDA-Public Use
  Company Number: US-ABBVIE-15P-163-1476902-00

PATIENT
  Age: 21 Year
  Sex: Female
  Weight: 47.22 kg

DRUGS (6)
  1. LIALDA [Concomitant]
     Active Substance: MESALAMINE
     Route: 048
     Dates: start: 20150828
  2. PREDNISONE. [Concomitant]
     Active Substance: PREDNISONE
     Dosage: TAPER
     Route: 048
     Dates: start: 20150724, end: 20150828
  3. LIALDA [Concomitant]
     Active Substance: MESALAMINE
     Indication: COLITIS ULCERATIVE
     Route: 048
     Dates: start: 20140930, end: 20150828
  4. PREDNISONE. [Concomitant]
     Active Substance: PREDNISONE
     Indication: COLITIS ULCERATIVE
     Dosage: TAPER
     Route: 048
     Dates: start: 20150219, end: 20150319
  5. HUMIRA [Suspect]
     Active Substance: ADALIMUMAB
     Indication: COLITIS ULCERATIVE
     Route: 058
     Dates: start: 20150226, end: 20150812
  6. ROWASA [Concomitant]
     Active Substance: MESALAMINE
     Indication: COLITIS ULCERATIVE
     Route: 054
     Dates: start: 20131101, end: 20150828

REACTIONS (1)
  - Infectious mononucleosis [Recovered/Resolved]

NARRATIVE: CASE EVENT DATE: 20150807
